FAERS Safety Report 9143560 (Version 1)
Quarter: 2013Q1

REPORT INFORMATION
  Report Type: Report from Study
  Country: US (occurrence: US)
  Receive Date: 20130306
  Receipt Date: 20130306
  Transmission Date: 20140127
  Serious: No
  Sender: FDA-Public Use
  Company Number: US-VERTEX PHARMACEUTICALS INC.-2013-003029

PATIENT
  Age: 42 Year
  Sex: Male

DRUGS (10)
  1. VX-950 (TELAPREVIR) [Suspect]
     Indication: HEPATITIS C
     Dosage: 750 MG, TID
     Route: 048
     Dates: start: 20130222
  2. PEGASYS [Suspect]
     Indication: HEPATITIS C
     Dosage: 180 ?G, WEEKLY
     Route: 058
     Dates: start: 20130222
  3. RIBASPHERE [Suspect]
     Indication: HEPATITIS C
     Dosage: 600 MG, BID
     Route: 048
     Dates: start: 20130222
  4. RAMIPRIL [Concomitant]
     Dosage: 5 MG, QD
     Route: 048
  5. PHENOBARBITAL [Concomitant]
     Dosage: 1 DF, UNK
  6. VITAMIN D [Concomitant]
     Dosage: 1000 UT, UNK
  7. DIPHENOXYLATE-ATROPINE [Concomitant]
     Dosage: 1 DF, QD
     Route: 048
  8. OXYCODONE HCL [Concomitant]
     Dosage: 5 MG, QD
     Route: 048
  9. FISH OIL [Concomitant]
     Dosage: 1000 MG, QD
     Route: 048
  10. FERROUSUL [Concomitant]
     Dosage: 325 MG, QD
     Route: 048

REACTIONS (1)
  - Fatigue [Unknown]
